FAERS Safety Report 21653064 (Version 2)
Quarter: 2022Q4

REPORT INFORMATION
  Report Type: Spontaneous
  Country: GB (occurrence: GB)
  Receive Date: 20221128
  Receipt Date: 20221202
  Transmission Date: 20230112
  Serious: Yes (Hospitalization)
  Sender: FDA-Public Use
  Company Number: GB-MHRA-MED-202211241154172620-KFTSP

PATIENT
  Age: 25 Year
  Sex: Male
  Weight: 65 kg

DRUGS (2)
  1. EMTRICITABINE [Suspect]
     Active Substance: EMTRICITABINE
     Indication: Prophylaxis against HIV infection
     Dosage: 200 MG
     Route: 065
     Dates: start: 20221010, end: 202211
  2. TENOFOVIR DISOPROXIL FUMARATE [Suspect]
     Active Substance: TENOFOVIR DISOPROXIL FUMARATE
     Indication: Prophylaxis against HIV infection
     Dosage: 245 MG
     Route: 065
     Dates: start: 20221010, end: 20221110

REACTIONS (4)
  - Skin burning sensation [Recovering/Resolving]
  - Paraesthesia [Recovering/Resolving]
  - Asthenia [Recovering/Resolving]
  - Palpitations [Recovering/Resolving]

NARRATIVE: CASE EVENT DATE: 20221001
